FAERS Safety Report 6470030-7 (Version None)
Quarter: 2009Q4

REPORT INFORMATION
  Report Type: 
  Country: None (occurrence: None)
  Receive Date: 20091203
  Receipt Date: 20071017
  Transmission Date: 20100525
  Serious: Yes (Hospitalization)
  Sender: FDA-Public Use
  Company Number: US-ELI_LILLY_AND_COMPANY-US200710002263

PATIENT
  Sex: Female

DRUGS (12)
  1. BYETTA [Suspect]
     Indication: TYPE 2 DIABETES MELLITUS
     Dosage: 5 UG, 2/D
     Route: 058
     Dates: start: 20070905, end: 20071001
  2. BYETTA [Suspect]
     Dosage: 10 UG, 2/D
     Route: 058
     Dates: start: 20071001
  3. AVANDIA [Concomitant]
     Indication: DIABETES MELLITUS
     Dosage: 8 MG, DAILY (1/D)
     Route: 065
  4. GLIMEPIRIDE [Concomitant]
     Indication: DIABETES MELLITUS
     Dosage: 4 MG, 2/D
     Route: 065
  5. METFORMIN HCL [Concomitant]
     Indication: DIABETES MELLITUS
     Dosage: 500 UNK, 2/D
     Route: 065
  6. LISINOPRIL [Concomitant]
     Indication: BLOOD PRESSURE INCREASED
     Dosage: 20 UNK, DAILY (1/D)
     Route: 065
  7. DIOVAN HCT [Concomitant]
     Indication: BLOOD PRESSURE INCREASED
     Dosage: UNK, DAILY (1/D)
     Route: 065
  8. DETROL /USA/ [Concomitant]
     Indication: POLLAKIURIA
     Dosage: 4 MG, DAILY (1/D)
     Route: 065
  9. ZOCOR [Concomitant]
     Indication: HYPERLIPIDAEMIA
     Dosage: 20 MG, EACH EVENING
     Route: 065
  10. REQUIP [Concomitant]
     Indication: RESTLESS LEGS SYNDROME
     Dosage: 0.5 UNK, AS NEEDED
     Route: 065
  11. GEODON [Concomitant]
     Indication: DEPRESSION
     Dosage: 40 UNK, EACH EVENING
     Route: 065
  12. PEPCID [Concomitant]
     Indication: DYSPEPSIA
     Dosage: 20 UNK, DAILY (1/D)
     Route: 065

REACTIONS (1)
  - NON-CARDIAC CHEST PAIN [None]
